FAERS Safety Report 9106405 (Version 1)
Quarter: 2013Q1

REPORT INFORMATION
  Report Type: Report from Study
  Country: DE (occurrence: DE)
  Receive Date: 20130221
  Receipt Date: 20130221
  Transmission Date: 20140127
  Serious: Yes (Hospitalization)
  Sender: FDA-Public Use
  Company Number: DE-ROCHE-1176851

PATIENT
  Age: 70 Year
  Sex: Female
  Weight: 83 kg

DRUGS (9)
  1. TRASTUZUMAB [Suspect]
     Indication: BREAST CANCER
     Dosage: DATE OF LAST DOSE PRIOR TO SAE 03/JAN/2013, LOADING DOSE
     Route: 042
     Dates: start: 20130103
  2. TRASTUZUMAB [Suspect]
     Dosage: MAINTENANCE DOSE
     Route: 042
  3. PANTOZOL [Concomitant]
     Route: 065
     Dates: start: 2008
  4. ENALAPRIL [Concomitant]
     Route: 065
     Dates: start: 2003
  5. EFEROX [Concomitant]
     Route: 065
     Dates: start: 1973
  6. SIMVASTATIN [Concomitant]
     Route: 065
     Dates: start: 2012
  7. CARMEN ACE [Concomitant]
     Route: 065
     Dates: start: 2012
  8. PERTUZUMAB [Suspect]
     Indication: BREAST CANCER
     Route: 042
     Dates: start: 20130103, end: 20130103
  9. PERTUZUMAB [Suspect]
     Route: 042
     Dates: start: 20130103

REACTIONS (1)
  - General physical health deterioration [Recovered/Resolved]
